FAERS Safety Report 6015113-0 (Version None)
Quarter: 2008Q4

REPORT INFORMATION
  Report Type: 
  Country: None (occurrence: None)
  Receive Date: 20081222
  Receipt Date: 20081215
  Transmission Date: 20090506
  Serious: Yes (Hospitalization)
  Sender: FDA-Public Use
  Company Number: DE-BRISTOL-MYERS SQUIBB COMPANY-14446207

PATIENT
  Age: 69 Year
  Sex: Female
  Weight: 72 kg

DRUGS (6)
  1. PACLITAXEL [Suspect]
     Indication: BREAST CANCER
     Dosage: THERAPY STARTED ON 21JUL2008
     Route: 042
     Dates: start: 20080812, end: 20080812
  2. CYCLOPHOSPHAMIDE [Suspect]
     Indication: BREAST CANCER
     Dosage: THERAPY STARTED ON 16-APR-2008
     Route: 042
     Dates: start: 20080625, end: 20080625
  3. BEVACIZUMAB [Suspect]
     Indication: BREAST CANCER
     Dosage: THERAPY STARTED ON 16-APR-2008
     Route: 042
     Dates: start: 20080625, end: 20080625
  4. EPIRUBICIN [Suspect]
     Indication: BREAST CANCER
     Dosage: THERAPY STARTED ON 16-APR-2008
     Route: 042
     Dates: start: 20080625, end: 20080625
  5. RAD001 [Suspect]
     Indication: BREAST CANCER
  6. METOPROLOL SUCCINATE [Concomitant]
     Dosage: THERAPY ONGOING
     Dates: start: 20000101

REACTIONS (10)
  - ALANINE AMINOTRANSFERASE INCREASED [None]
  - BONE MARROW FAILURE [None]
  - BREAST OPERATION [None]
  - BREAST PROSTHESIS REMOVAL [None]
  - EMBOLISM [None]
  - GLUCOSE URINE PRESENT [None]
  - LIVER FUNCTION TEST ABNORMAL [None]
  - MUCOSAL INFLAMMATION [None]
  - SEPSIS [None]
  - SURGERY [None]
